FAERS Safety Report 10373025 (Version 1)
Quarter: 2014Q3

REPORT INFORMATION
  Report Type: Spontaneous
  Country: US (occurrence: US)
  Receive Date: 20140808
  Receipt Date: 20140808
  Transmission Date: 20150326
  Serious: No
  Sender: FDA-Public Use
  Company Number: US-BRISTOL-MYERS SQUIBB COMPANY-19924521

PATIENT
  Age: 45 Year
  Sex: Female
  Weight: 58.96 kg

DRUGS (16)
  1. ATIVAN [Concomitant]
     Active Substance: LORAZEPAM
     Dosage: TABS
  2. NICOTINE. [Concomitant]
     Active Substance: NICOTINE
  3. MIRALAX [Concomitant]
     Active Substance: POLYETHYLENE GLYCOL 3350
     Dosage: POW 3350 NF
  4. SPRYCEL [Suspect]
     Active Substance: DASATINIB
     Indication: CHRONIC LYMPHOCYTIC LEUKAEMIA
     Dosage: TABS
     Route: 048
  5. AMOXICILLIN. [Concomitant]
     Active Substance: AMOXICILLIN
     Dosage: CAPS
  6. ENSURE [Concomitant]
     Active Substance: AMINO ACIDS\DEXTROSE\ELECTROLYTES NOS\SOYBEAN OIL\VITAMINS
     Dosage: LIQ DRINK CHOC
  7. MARINOL [Concomitant]
     Active Substance: DRONABINOL
     Dosage: CAPS
  8. CYMBALTA [Concomitant]
     Active Substance: DULOXETINE HYDROCHLORIDE
     Dosage: CAPS
  9. EPIPEN [Concomitant]
     Active Substance: EPINEPHRINE
     Dosage: INJ
  10. CLARITIN [Concomitant]
     Active Substance: LORATADINE
     Dosage: CAPS
  11. XANAX [Concomitant]
     Active Substance: ALPRAZOLAM
     Dosage: TABS
  12. OXYCONTIN [Concomitant]
     Active Substance: OXYCODONE HYDROCHLORIDE
     Dosage: TABS
  13. ZOFRAN [Concomitant]
     Active Substance: ONDANSETRON HYDROCHLORIDE
     Dosage: TABS
  14. MILK OF MAGNESIA [Concomitant]
     Active Substance: MAGNESIUM HYDROXIDE
     Dosage: SUSP
  15. VALIUM [Concomitant]
     Active Substance: DIAZEPAM
     Dosage: TABS
  16. MELATONIN [Concomitant]
     Active Substance: MELATONIN
     Dosage: CAP ADVANCED

REACTIONS (3)
  - Dry skin [Unknown]
  - Musculoskeletal pain [Unknown]
  - Periorbital oedema [Unknown]
